FAERS Safety Report 21309092 (Version 1)
Quarter: 2022Q3

REPORT INFORMATION
  Report Type: Report from Study
  Country: US (occurrence: None)
  Receive Date: 20220908
  Receipt Date: 20220908
  Transmission Date: 20221026
  Serious: Yes (Hospitalization)
  Sender: FDA-Public Use
  Company Number: US-Eisai Medical Research-EC-2022-120922

PATIENT
  Age: 77 Year
  Sex: Female

DRUGS (2)
  1. LENVIMA [Suspect]
     Active Substance: LENVATINIB
     Indication: Endometrial cancer
     Route: 048
     Dates: start: 20220801, end: 202208
  2. KEYTRUDA [Concomitant]
     Active Substance: PEMBROLIZUMAB
     Indication: Endometrial cancer
     Dosage: DOSE AND FREQUENCY UNKNOWN
     Route: 042

REACTIONS (8)
  - Taste disorder [Unknown]
  - Weight decreased [Unknown]
  - Pain [Unknown]
  - Decreased appetite [Unknown]
  - Nausea [Unknown]
  - Myalgia [Unknown]
  - Arthralgia [Unknown]
  - Stomatitis [Unknown]

NARRATIVE: CASE EVENT DATE: 20220801
